FAERS Safety Report 25166201 (Version 2)
Quarter: 2025Q2

REPORT INFORMATION
  Report Type: Spontaneous
  Country: US (occurrence: US)
  Receive Date: 20250407
  Receipt Date: 20250426
  Transmission Date: 20250716
  Serious: Yes (Life-Threatening, Hospitalization, Other)
  Sender: LUPIN
  Company Number: US-LUPIN PHARMACEUTICALS INC.-2025-02810

PATIENT
  Age: 36 Year
  Sex: Female

DRUGS (10)
  1. CLOMIPRAMINE [Interacting]
     Active Substance: CLOMIPRAMINE
     Indication: Major depression
     Dosage: 150 MILLIGRAM, QD
     Route: 065
  2. LIDOCAINE [Interacting]
     Active Substance: LIDOCAINE
     Indication: Induction of anaesthesia
  3. ATOMOXETINE [Concomitant]
     Active Substance: ATOMOXETINE
     Indication: Major depression
     Route: 065
  4. KETAMINE [Concomitant]
     Active Substance: KETAMINE
     Indication: Major depression
  5. KETAMINE [Concomitant]
     Active Substance: KETAMINE
  6. GABAPENTIN [Concomitant]
     Active Substance: GABAPENTIN
     Indication: Major depression
     Dosage: 1200 MILLIGRAM, BID
     Route: 065
  7. METHOHEXITAL [Concomitant]
     Active Substance: METHOHEXITAL
     Indication: Induction of anaesthesia
  8. SUCCINYLCHOLINE [Concomitant]
     Active Substance: SUCCINYLCHOLINE
     Indication: Induction of anaesthesia
     Route: 065
  9. LACOSAMIDE [Concomitant]
     Active Substance: LACOSAMIDE
     Indication: Seizure prophylaxis
     Dosage: 100 MILLIGRAM, BID
     Route: 065
  10. LITHIUM [Concomitant]
     Active Substance: LITHIUM
     Indication: Suicidal ideation
     Route: 065

REACTIONS (2)
  - Status epilepticus [Recovered/Resolved]
  - Drug interaction [Unknown]
